FAERS Safety Report 20816737 (Version 1)
Quarter: 2022Q2

REPORT INFORMATION
  Report Type: Other
  Country: MA (occurrence: MA)
  Receive Date: 20220512
  Receipt Date: 20220512
  Transmission Date: 20220721
  Serious: No
  Sender: FDA-Public Use
  Company Number: NL-TOLMAR, INC.-22NL032980

PATIENT
  Age: 81 Year
  Sex: Male

DRUGS (1)
  1. ELIGARD [Suspect]
     Active Substance: LEUPROLIDE ACETATE
     Indication: Product used for unknown indication
     Dosage: 45 MILLIGRAM, Q 6 MONTH
     Route: 058
     Dates: start: 20180226

REACTIONS (2)
  - COVID-19 [Recovering/Resolving]
  - Intentional dose omission [Unknown]

NARRATIVE: CASE EVENT DATE: 20220211
